FAERS Safety Report 12153919 (Version 1)
Quarter: 2016Q1

REPORT INFORMATION
  Report Type: Spontaneous
  Country: US (occurrence: US)
  Receive Date: 20160307
  Receipt Date: 20160307
  Transmission Date: 20160526
  Serious: No
  Sender: FDA-Public Use
  Company Number: US-HORIZON-RAV-0046-2016

PATIENT
  Age: 3 Year
  Sex: Female

DRUGS (4)
  1. CITRULLINE [Concomitant]
     Active Substance: CITRULLINE
     Dosage: 1 G
  2. ANAMIX [Concomitant]
  3. PROPHREE [Concomitant]
  4. RAVICTI [Suspect]
     Active Substance: GLYCEROL PHENYLBUTYRATE
     Indication: ORNITHINE TRANSCARBAMOYLASE DEFICIENCY
     Dosage: 2.2 ML TID

REACTIONS (1)
  - Amino acid level increased [Unknown]
